FAERS Safety Report 7000436-9 (Version None)
Quarter: 2010Q3

REPORT INFORMATION
  Report Type: 
  Country: None (occurrence: None)
  Receive Date: 20100920
  Receipt Date: 20090828
  Transmission Date: 20110219
  Serious: No
  Sender: FDA-Public Use
  Company Number: US-ASTRAZENECA-2009SE10518

PATIENT
  Age: 60 Year
  Sex: Male
  Weight: 79.4 kg

DRUGS (4)
  1. SEROQUEL [Suspect]
     Indication: ANXIETY
     Route: 048
  2. SEROQUEL [Suspect]
     Indication: DEPRESSION
     Route: 048
  3. SEROQUEL [Suspect]
     Indication: STRESS
     Route: 048
  4. AMBIEN [Concomitant]

REACTIONS (4)
  - CHILLS [None]
  - DRY MOUTH [None]
  - HYPERHIDROSIS [None]
  - HYPOAESTHESIA ORAL [None]
